FAERS Safety Report 6532684-6 (Version None)
Quarter: 2010Q1

REPORT INFORMATION
  Report Type: 
  Country: None (occurrence: None)
  Receive Date: 20100111
  Receipt Date: 20100104
  Transmission Date: 20100710
  Serious: Yes (Other)
  Sender: FDA-Public Use
  Company Number: US-BAYER-200938685NA

PATIENT
  Age: 30 Year
  Sex: Female
  Weight: 122 kg

DRUGS (1)
  1. YAZ [Suspect]
     Indication: CONTRACEPTION
     Dates: start: 20090901, end: 20091001

REACTIONS (1)
  - DEEP VEIN THROMBOSIS [None]
